FAERS Safety Report 21512319 (Version 1)
Quarter: 2022Q4

REPORT INFORMATION
  Report Type: Spontaneous
  Country: US (occurrence: None)
  Receive Date: 20221027
  Receipt Date: 20221027
  Transmission Date: 20230113
  Serious: No
  Sender: FDA-Public Use
  Company Number: US-Ultragenyx Pharmaceutical Inc.-US-UGNX-22-00371

PATIENT
  Sex: Female

DRUGS (3)
  1. DOJOLVI [Suspect]
     Active Substance: TRIHEPTANOIN
     Indication: Pyruvate carboxylase deficiency
     Dosage: MAINTENANCE 6ML, 8 TIMES DAILY, VIA G-TUBE
     Dates: start: 20220527
  2. DOJOLVI [Suspect]
     Active Substance: TRIHEPTANOIN
     Dosage: 6ML, 8 TIMES DAILY, VIA G-TUBE
     Dates: start: 20220601
  3. DOJOLVI [Suspect]
     Active Substance: TRIHEPTANOIN
     Dosage: 3 ML, EIGHT TIMES DAILY VIA G-TUBE

REACTIONS (2)
  - Off label use [Unknown]
  - Diarrhoea [Unknown]
